FAERS Safety Report 7854431 (Version 4)
Quarter: 2012Q4

REPORT INFORMATION
  Report Type: 
  Country: US (occurrence: US)
  Receive Date: 20110314
  Receipt Date: 20121127
  Transmission Date: 20130627
  Serious: Yes (Hospitalization)
  Sender: FDA-Public Use
  Company Number: US-ASTRAZENECA-2010SE44531

PATIENT
  Age: 80 Year
  Sex: Female

DRUGS (4)
  1. NEXIUM [Suspect]
     Route: 048
  2. NEXIUM [Suspect]
     Dosage: generic
     Route: 048
  3. CRESTOR [Suspect]
     Route: 048
  4. PANCREAS MEDICATION [Concomitant]

REACTIONS (7)
  - Pancreatic disorder [Unknown]
  - Intentional drug misuse [Unknown]
  - Gastrooesophageal reflux disease [Unknown]
  - Blood cholesterol increased [Unknown]
  - Blister [Unknown]
  - Malaise [Unknown]
  - Drug dose omission [Unknown]
